FAERS Safety Report 8343811-2 (Version None)
Quarter: 2012Q2

REPORT INFORMATION
  Report Type: 
  Country: None (occurrence: None)
  Receive Date: 20120508
  Receipt Date: 20120430
  Transmission Date: 20120825
  Serious: Yes (Hospitalization)
  Sender: FDA-Public Use
  Company Number: US-BAYER-2011-049669

PATIENT
  Age: 29 Year
  Sex: Female
  Weight: 95.238 kg

DRUGS (7)
  1. DROSPIRENONE AND ETHINYL ESTRADIOL [Suspect]
     Indication: CONTRACEPTION
     Dosage: UNK
     Dates: start: 20080717, end: 20091104
  2. FLUTICASONE FUROATE [Concomitant]
     Dosage: 50 ?G, UNK
     Route: 045
     Dates: start: 20091123
  3. ZYRTEC [Concomitant]
     Dosage: 10 MG, UNK
     Route: 048
     Dates: start: 20100206
  4. AZITHROMYCIN [Concomitant]
     Dosage: 250 MG, UNK
     Route: 048
     Dates: start: 20091113
  5. MULTI-VITAMIN [Concomitant]
     Dosage: UNK
     Route: 048
     Dates: start: 20100201
  6. CLINDAMYCIN [Concomitant]
     Dosage: 300 MG EVERY 6 HOURS
     Route: 048
     Dates: start: 20100201
  7. DOXYCYCLINE [Concomitant]
     Dosage: 100 MG, UNK
     Dates: start: 20091123

REACTIONS (10)
  - CHOLECYSTITIS [None]
  - DISCOMFORT [None]
  - NAUSEA [None]
  - VOMITING [None]
  - HEADACHE [None]
  - ABDOMINAL PAIN [None]
  - EMOTIONAL DISTRESS [None]
  - ANXIETY [None]
  - GALLBLADDER CHOLESTEROLOSIS [None]
  - GASTROINTESTINAL TRACT IRRITATION [None]
